FAERS Safety Report 4659520-7 (Version None)
Quarter: 2005Q2

REPORT INFORMATION
  Report Type: 
  Country: None (occurrence: None)
  Receive Date: 20050511
  Receipt Date: 20050504
  Transmission Date: 20051028
  Serious: Yes (Hospitalization)
  Sender: FDA-Public Use
  Company Number: BE-MERCK-0505BEL00027

PATIENT
  Age: 67 Year
  Sex: Male

DRUGS (1)
  1. SINGULAIR [Suspect]
     Indication: ASTHMA
     Route: 048
     Dates: start: 20041208, end: 20050301

REACTIONS (2)
  - CONTUSION [None]
  - ROAD TRAFFIC ACCIDENT [None]
